FAERS Safety Report 17220595 (Version 2)
Quarter: 2020Q1

REPORT INFORMATION
  Report Type: Spontaneous
  Country: AU (occurrence: AU)
  Receive Date: 20191231
  Receipt Date: 20200121
  Transmission Date: 20200409
  Serious: Yes (Other)
  Sender: FDA-Public Use
  Company Number: AU-OTSUKA-2018_018848

PATIENT
  Sex: Female

DRUGS (1)
  1. ABILIFY MAINTENA [Suspect]
     Active Substance: ARIPIPRAZOLE
     Indication: MENTAL DISORDER
     Dosage: RANGE BETWEEN 5 MG AND 60 MG)
     Route: 065

REACTIONS (4)
  - Gestational hypertension [Unknown]
  - Product use in unapproved indication [Unknown]
  - Foetal exposure during pregnancy [Unknown]
  - Apgar score abnormal [Unknown]
